FAERS Safety Report 8459977 (Version 4)
Quarter: 2012Q4

REPORT INFORMATION
  Report Type: 
  Country: US (occurrence: US)
  Receive Date: 20120314
  Receipt Date: 20120829
  Transmission Date: 20130627
  Serious: Yes (Other)
  Sender: FDA-Public Use
  Company Number: US-009507513-1203USA01480

PATIENT

DRUGS (1)
  1. FOSAMAX [Suspect]
     Indication: OSTEOPOROSIS
     Dosage: 70 mg, QW
     Route: 048
     Dates: start: 200301, end: 200805

REACTIONS (18)
  - Femur fracture [Unknown]
  - Medical device removal [Unknown]
  - Intramedullary rod insertion [Unknown]
  - Low turnover osteopathy [Unknown]
  - Hormone level abnormal [Unknown]
  - Anxiety [Not Recovered/Not Resolved]
  - Pulmonary mass [Unknown]
  - Stress [Unknown]
  - Arthropathy [Unknown]
  - Granuloma [Unknown]
  - Tooth disorder [Unknown]
  - Gait disturbance [Recovered/Resolved]
  - Bursitis [Recovering/Resolving]
  - Device failure [Recovering/Resolving]
  - Constipation [Unknown]
  - Abdominal pain upper [Unknown]
  - Emotional distress [None]
  - Walking aid user [None]
